FAERS Safety Report 25807975 (Version 1)
Quarter: 2025Q3

REPORT INFORMATION
  Report Type: Other
  Country: US (occurrence: US)
  Receive Date: 20250916
  Receipt Date: 20250916
  Transmission Date: 20251020
  Serious: No
  Sender: Alora Pharma
  Company Number: US-OSMOTICA PHARMACEUTICALS-2024ALO00452

PATIENT

DRUGS (1)
  1. METHYLPHENIDATE HYDROCHLORIDE [Suspect]
     Active Substance: METHYLPHENIDATE HYDROCHLORIDE
     Dates: start: 20240701

REACTIONS (7)
  - Disturbance in attention [Not Recovered/Not Resolved]
  - Distractibility [Not Recovered/Not Resolved]
  - Hunger [Not Recovered/Not Resolved]
  - Performance status decreased [Not Recovered/Not Resolved]
  - Drug ineffective [Unknown]
  - Therapeutic response changed [Unknown]
  - Product substitution issue [Unknown]

NARRATIVE: CASE EVENT DATE: 20240101
